FAERS Safety Report 23391005 (Version 3)
Quarter: 2024Q1

REPORT INFORMATION
  Report Type: Spontaneous
  Country: US (occurrence: None)
  Receive Date: 20240111
  Receipt Date: 20240213
  Transmission Date: 20240410
  Serious: Yes (Hospitalization)
  Sender: FDA-Public Use
  Company Number: 2024A002329

PATIENT
  Sex: Female

DRUGS (2)
  1. BYDUREON BCISE [Suspect]
     Active Substance: EXENATIDE
     Route: 058
     Dates: start: 202303, end: 2023
  2. BYDUREON BCISE [Concomitant]
     Active Substance: EXENATIDE

REACTIONS (7)
  - Myocardial infarction [Recovered/Resolved]
  - Blood test abnormal [Recovered/Resolved]
  - Clostridium difficile infection [Recovered/Resolved]
  - Eating disorder symptom [Unknown]
  - Weight decreased [Unknown]
  - Product dose omission issue [Unknown]
  - Device leakage [Unknown]
